FAERS Safety Report 11854411 (Version 1)
Quarter: 2015Q4

REPORT INFORMATION
  Report Type: Spontaneous
  Country: CA (occurrence: CA)
  Receive Date: 20151221
  Receipt Date: 20151221
  Transmission Date: 20160305
  Serious: Yes (Hospitalization)
  Sender: FDA-Public Use
  Company Number: CA-HOSPIRA-3107222

PATIENT
  Age: 52 Year
  Sex: Male

DRUGS (2)
  1. ACID CONTROL [Suspect]
     Active Substance: FAMOTIDINE
     Indication: HAEMODIALYSIS
     Route: 010
  2. SODIUM HYDROGEN CARBONATE [Suspect]
     Active Substance: SODIUM BICARBONATE
     Indication: HAEMODIALYSIS
     Route: 010

REACTIONS (2)
  - Cardiac failure congestive [Recovered/Resolved]
  - Cardiac valve disease [Recovered/Resolved]
